FAERS Safety Report 7250809-4 (Version None)
Quarter: 2011Q1

REPORT INFORMATION
  Report Type: 
  Country: None (occurrence: None)
  Receive Date: 20110119
  Receipt Date: 20110106
  Transmission Date: 20110831
  Serious: Yes (Death)
  Sender: FDA-Public Use
  Company Number: 025104

PATIENT
  Sex: Male
  Weight: 134 kg

DRUGS (5)
  1. KEPPRA [Suspect]
     Indication: EPILEPSY
     Dosage: 250 MG TID
     Dates: start: 20100601, end: 20101020
  2. MARCUMAR [Concomitant]
  3. AMIODARONE HCL [Concomitant]
  4. LEVOTHYROXINE SODIUM [Concomitant]
  5. TORASEMID [Concomitant]

REACTIONS (1)
  - DEATH [None]
